FAERS Safety Report 4931168-6 (Version None)
Quarter: 2006Q1

REPORT INFORMATION
  Report Type: 
  Country: None (occurrence: None)
  Receive Date: 20060302
  Receipt Date: 20051020
  Transmission Date: 20060701
  Serious: Yes (Hospitalization)
  Sender: FDA-Public Use
  Company Number: US-MERCK-0510USA08441

PATIENT
  Age: 62 Year
  Sex: Male

DRUGS (4)
  1. VIOXX [Suspect]
     Route: 048
     Dates: start: 20020201, end: 20030301
  2. LODINE [Concomitant]
     Route: 065
  3. ULTRAM [Concomitant]
     Route: 065
  4. ZANTAC [Concomitant]
     Route: 065

REACTIONS (19)
  - ACUTE MYOCARDIAL INFARCTION [None]
  - ANGINA PECTORIS [None]
  - CHEST DISCOMFORT [None]
  - DIZZINESS [None]
  - DYSLIPIDAEMIA [None]
  - GASTRIC ULCER [None]
  - GASTRITIS [None]
  - HEADACHE [None]
  - HELICOBACTER GASTRITIS [None]
  - HYPERTENSION [None]
  - HYPOTENSION [None]
  - ISCHAEMIC CARDIOMYOPATHY [None]
  - LABYRINTHITIS [None]
  - LEFT VENTRICULAR FAILURE [None]
  - METAPLASIA [None]
  - MITRAL VALVE INCOMPETENCE [None]
  - PEPTIC ULCER [None]
  - UPPER GASTROINTESTINAL HAEMORRHAGE [None]
  - WEIGHT DECREASED [None]
